FAERS Safety Report 5045847-6 (Version None)
Quarter: 2006Q3

REPORT INFORMATION
  Report Type: 
  Country: None (occurrence: None)
  Receive Date: 20060710
  Receipt Date: 20060630
  Transmission Date: 20061208
  Serious: Yes (Hospitalization)
  Sender: FDA-Public Use
  Company Number: 2006UW13824

PATIENT
  Age: 80 Year
  Sex: Female
  Weight: 45.4 kg

DRUGS (2)
  1. SEROQUEL [Suspect]
     Indication: UNEVALUABLE EVENT
     Route: 048
     Dates: start: 20050601
  2. CELEBREX [Concomitant]

REACTIONS (1)
  - FALL [None]
